FAERS Safety Report 24741781 (Version 1)
Quarter: 2024Q4

REPORT INFORMATION
  Report Type: Spontaneous
  Country: JP (occurrence: JP)
  Receive Date: 20241217
  Receipt Date: 20241217
  Transmission Date: 20250115
  Serious: Yes (Death, Other)
  Sender: ALEXION PHARMACEUTICALS
  Company Number: JP-ASTRAZENECA-240139133_013120_P_1

PATIENT
  Age: 74 Year
  Weight: 50 kg

DRUGS (10)
  1. DURVALUMAB [Suspect]
     Active Substance: DURVALUMAB
     Indication: Small cell lung cancer
  2. DURVALUMAB [Suspect]
     Active Substance: DURVALUMAB
     Route: 041
  3. DURVALUMAB [Suspect]
     Active Substance: DURVALUMAB
  4. DURVALUMAB [Suspect]
     Active Substance: DURVALUMAB
     Route: 041
  5. CARBOPLATIN [Concomitant]
     Active Substance: CARBOPLATIN
     Indication: Small cell lung cancer
     Dosage: UNK, Q3W
     Route: 065
  6. CARBOPLATIN [Concomitant]
     Active Substance: CARBOPLATIN
     Dosage: UNK, Q3W
     Route: 065
  7. ETOPOSIDE [Concomitant]
     Active Substance: ETOPOSIDE
     Indication: Small cell lung cancer
     Dosage: DAY 1, 2 AND 3 OF EACH CYCLE
     Route: 065
  8. ETOPOSIDE [Concomitant]
     Active Substance: ETOPOSIDE
     Dosage: DAY 1, 2 AND 3 OF EACH CYCLE
     Route: 065
  9. ETOPOSIDE [Concomitant]
     Active Substance: ETOPOSIDE
     Dosage: DAY 1, 2 AND 3 OF EACH CYCLE
     Route: 065
  10. ETOPOSIDE [Concomitant]
     Active Substance: ETOPOSIDE
     Dosage: DAY 1, 2 AND 3 OF EACH CYCLE
     Route: 065

REACTIONS (3)
  - Pleural effusion [Fatal]
  - Neutropenia [Unknown]
  - Thyroiditis [Unknown]
